FAERS Safety Report 5119128-6 (Version None)
Quarter: 2006Q3

REPORT INFORMATION
  Report Type: 
  Country: None (occurrence: None)
  Receive Date: 20060929
  Receipt Date: 20060929
  Transmission Date: 20061208
  Serious: Yes (Other)
  Sender: FDA-Public Use
  Company Number: None

PATIENT
  Sex: Female
  Weight: 72.5755 kg

DRUGS (1)
  1. DYAZIDE [Suspect]
     Indication: HYPERTENSION
     Dosage: 37.5 / 25 1 Q AM PO
     Route: 048

REACTIONS (1)
  - DRUG INEFFECTIVE [None]
